FAERS Safety Report 24659875 (Version 1)
Quarter: 2024Q4

REPORT INFORMATION
  Report Type: Spontaneous
  Country: CA (occurrence: CA)
  Receive Date: 20241125
  Receipt Date: 20241125
  Transmission Date: 20250114
  Serious: Yes (Other)
  Sender: DAIICHI
  Company Number: CA-ASTRAZENECA-202411CAN006465CA

PATIENT
  Sex: Female

DRUGS (1)
  1. TRASTUZUMAB DERUXTECAN [Suspect]
     Active Substance: TRASTUZUMAB DERUXTECAN
     Indication: HER2 positive breast cancer
     Dosage: 414 MG, ONCE EVERY 3 WK
     Route: 042

REACTIONS (8)
  - Appetite disorder [Unknown]
  - Asthenia [Unknown]
  - Hypotension [Unknown]
  - Neutropenia [Unknown]
  - Sleep disorder [Unknown]
  - Speech disorder [Unknown]
  - Vomiting [Unknown]
  - Product use issue [Unknown]
